FAERS Safety Report 6366366-0 (Version None)
Quarter: 2009Q3

REPORT INFORMATION
  Report Type: 
  Country: None (occurrence: None)
  Receive Date: 20090921
  Receipt Date: 20090909
  Transmission Date: 20100115
  Serious: No
  Sender: FDA-Public Use
  Company Number: US-SOLVAY-00209005062

PATIENT
  Age: 74 Month
  Sex: Female
  Weight: 26.7 kg

DRUGS (3)
  1. ANDROGEL [Suspect]
     Indication: BLOOD TESTOSTERONE DECREASED
     Dosage: DAILY DOSE:  UNKNOWN
     Route: 062
     Dates: start: 20060101, end: 20081104
  2. ANDRODERM [Suspect]
     Indication: BLOOD TESTOSTERONE DECREASED
     Dosage: DAILY DOSE: 5 MILLIGRAM(S)
     Route: 062
     Dates: start: 20081105, end: 20090802
  3. ANDRODERM [Suspect]
     Dosage: DAILY DOSE: 5 MILLIGRAM(S)
     Route: 062
     Dates: start: 20090803

REACTIONS (1)
  - PRECOCIOUS PUBERTY [None]
